FAERS Safety Report 4296818-9 (Version None)
Quarter: 2004Q1

REPORT INFORMATION
  Report Type: 
  Country: None (occurrence: None)
  Receive Date: 20040126
  Receipt Date: 20031110
  Transmission Date: 20041129
  Serious: No
  Sender: FDA-Public Use
  Company Number: USA030741729

PATIENT
  Age: 15 Year
  Sex: Male
  Weight: 59 kg

DRUGS (3)
  1. STRATTERA [Suspect]
     Indication: ATTENTION DEFICIT/HYPERACTIVITY DISORDER
     Dosage: 80 MG/DAY
     Dates: start: 20030620
  2. STRATTERA [Suspect]
     Indication: TIC
     Dosage: 80 MG/DAY
     Dates: start: 20030620
  3. WELLBUTRIN [Concomitant]

REACTIONS (7)
  - EDUCATIONAL PROBLEM [None]
  - FATIGUE [None]
  - FEELING ABNORMAL [None]
  - HYPERSOMNIA [None]
  - LETHARGY [None]
  - PALLOR [None]
  - SOMNOLENCE [None]
